FAERS Safety Report 12184397 (Version 1)
Quarter: 2016Q1

REPORT INFORMATION
  Report Type: Spontaneous
  Country: US (occurrence: US)
  Receive Date: 20160316
  Receipt Date: 20160316
  Transmission Date: 20160526
  Serious: Yes (Other)
  Sender: FDA-Public Use
  Company Number: US-LUNDBECK-DKLU2011100

PATIENT
  Sex: Female
  Weight: 45 kg

DRUGS (2)
  1. NORTHERA [Suspect]
     Active Substance: DROXIDOPA
     Indication: ORTHOSTATIC HYPOTENSION
     Route: 065
  2. NORTHERA [Suspect]
     Active Substance: DROXIDOPA
     Indication: POSTURAL ORTHOSTATIC TACHYCARDIA SYNDROME
     Route: 065
     Dates: start: 20160305

REACTIONS (12)
  - Apathy [Unknown]
  - Pollakiuria [Unknown]
  - Panic attack [Unknown]
  - Balance disorder [Unknown]
  - Seizure like phenomena [Recovered/Resolved]
  - Constipation [Recovering/Resolving]
  - Irritability [Unknown]
  - Weight increased [Unknown]
  - Libido decreased [Unknown]
  - Fatigue [Unknown]
  - Labile blood pressure [Unknown]
  - Anxiety [Unknown]
